FAERS Safety Report 12987419 (Version 1)
Quarter: 2016Q4

REPORT INFORMATION
  Report Type: Spontaneous
  Country: US (occurrence: US)
  Receive Date: 20161130
  Receipt Date: 20161130
  Transmission Date: 20170207
  Serious: No
  Sender: FDA-Public Use
  Company Number: PHEH2016US031065

PATIENT
  Sex: Male

DRUGS (1)
  1. VOTRIENT [Suspect]
     Active Substance: PAZOPANIB HYDROCHLORIDE
     Indication: BENIGN RENAL NEOPLASM
     Dosage: 4 DF, QD
     Route: 048
     Dates: start: 20161003

REACTIONS (3)
  - Diarrhoea [Unknown]
  - Alopecia [Unknown]
  - Oral pain [Unknown]
